FAERS Safety Report 5227200-5 (Version None)
Quarter: 2007Q1

REPORT INFORMATION
  Report Type: 
  Country: None (occurrence: None)
  Receive Date: 20070202
  Receipt Date: 20070201
  Transmission Date: 20070707
  Serious: Yes (Other)
  Sender: FDA-Public Use
  Company Number: US-GLAXOSMITHKLINE-A0638015A

PATIENT
  Sex: Male

DRUGS (4)
  1. LAMOTRIGINE [Suspect]
     Dosage: 150MG PER DAY
     Dates: start: 20050202
  2. PRENATAL VITAMINS [Concomitant]
  3. FOLIC ACID [Concomitant]
  4. ZOLOFT [Concomitant]
     Dosage: 50MG PER DAY

REACTIONS (3)
  - ACOUSTIC STIMULATION TESTS ABNORMAL [None]
  - DRUG EXPOSURE DURING PREGNANCY [None]
  - JAUNDICE NEONATAL [None]
